FAERS Safety Report 19555497 (Version 8)
Quarter: 2024Q2

REPORT INFORMATION
  Report Type: Spontaneous
  Country: US (occurrence: US)
  Receive Date: 20210715
  Receipt Date: 20240507
  Transmission Date: 20240715
  Serious: Yes (Other)
  Sender: FDA-Public Use
  Company Number: US-PFIZER INC-2021823374

PATIENT
  Age: 74 Year
  Sex: Female

DRUGS (2)
  1. PREMARIN [Suspect]
     Active Substance: ESTROGENS, CONJUGATED
     Indication: Vulvovaginal pruritus
     Dosage: UNK
  2. PREMARIN [Suspect]
     Active Substance: ESTROGENS, CONJUGATED
     Dosage: TWICE A WEEK, GRAM OR SOMETHING/EVERY THREE DAYS WHICH WAS ABOUT TWICE A WEEK
     Dates: end: 20230731

REACTIONS (8)
  - Eye disorder [Not Recovered/Not Resolved]
  - Spinal operation [Unknown]
  - Malaise [Unknown]
  - Pruritus [Recovering/Resolving]
  - Pruritus genital [Not Recovered/Not Resolved]
  - Initial insomnia [Not Recovered/Not Resolved]
  - Expired product administered [Unknown]
  - Off label use [Unknown]

NARRATIVE: CASE EVENT DATE: 20210101
